FAERS Safety Report 16544054 (Version 1)
Quarter: 2019Q3

REPORT INFORMATION
  Report Type: Spontaneous
  Country: BR (occurrence: BR)
  Receive Date: 20190709
  Receipt Date: 20190709
  Transmission Date: 20191004
  Serious: Yes (Other)
  Sender: FDA-Public Use
  Company Number: BR-PFIZER INC-2019291593

PATIENT
  Sex: Female

DRUGS (1)
  1. LORAX (LORAZEPAM) [Suspect]
     Active Substance: LORAZEPAM
     Indication: INSOMNIA
     Dosage: 1 MG/KG, UNK
     Dates: start: 1999, end: 2019

REACTIONS (4)
  - Product use issue [Unknown]
  - Drug dependence [Unknown]
  - Suicidal ideation [Unknown]
  - Off label use [Unknown]

NARRATIVE: CASE EVENT DATE: 2019
